FAERS Safety Report 22822694 (Version 3)
Quarter: 2023Q4

REPORT INFORMATION
  Report Type: Report from Study
  Country: IE (occurrence: IE)
  Receive Date: 20230815
  Receipt Date: 20231019
  Transmission Date: 20240110
  Serious: Yes (Other)
  Sender: FDA-Public Use
  Company Number: IE-002147023-NVSC2023IE176631

PATIENT
  Age: 56 Year
  Sex: Female

DRUGS (1)
  1. COSENTYX [Suspect]
     Active Substance: SECUKINUMAB
     Indication: Psoriasis
     Dosage: 300 MG, QMO
     Route: 058
     Dates: start: 20221005, end: 20230705

REACTIONS (3)
  - Eye haemorrhage [Not Recovered/Not Resolved]
  - Device malfunction [Not Recovered/Not Resolved]
  - Eye inflammation [Unknown]

NARRATIVE: CASE EVENT DATE: 20221012
